FAERS Safety Report 9287676 (Version 1)
Quarter: 2013Q2

REPORT INFORMATION
  Report Type: Report from Study
  Country: MX (occurrence: MX)
  Receive Date: 20130514
  Receipt Date: 20130514
  Transmission Date: 20140414
  Serious: Yes (Other)
  Sender: FDA-Public Use
  Company Number: PHHY2013MX047201

PATIENT
  Age: 58 Year
  Sex: Female

DRUGS (1)
  1. EXFORGE [Suspect]
     Indication: HYPERTENSION
     Dosage: 1 DF (160/10), DAILY
     Route: 048
     Dates: start: 201211, end: 201305

REACTIONS (2)
  - Nephropathy toxic [Not Recovered/Not Resolved]
  - Local swelling [Not Recovered/Not Resolved]
